FAERS Safety Report 18348164 (Version 1)
Quarter: 2020Q4

REPORT INFORMATION
  Report Type: Spontaneous
  Country: US (occurrence: US)
  Receive Date: 20201005
  Receipt Date: 20201005
  Transmission Date: 20210114
  Serious: Yes (Death)
  Sender: FDA-Public Use
  Company Number: None

PATIENT
  Age: 74 Year
  Sex: Male

DRUGS (13)
  1. AMLODIPINE (NORVASC) 10 MG TABLET [Concomitant]
  2. GABAPENTIN (NEURONTIN) 300 MG CAPSULE [Concomitant]
  3. DULOXETINE (CYMBALTA) 30 MG DR CAPSULE [Concomitant]
  4. ASPIRIN 81 MG EC TABLET [Concomitant]
  5. POLYETHYLENE GLYCOL (MIRALAX) 17 GRAM PACKET [Concomitant]
  6. DESCOVY [Suspect]
     Active Substance: EMTRICITABINE\TENOFOVIR ALAFENAMIDE FUMARATE
     Indication: HIV INFECTION
     Route: 048
     Dates: start: 20200812, end: 20201002
  7. ISENTRESS [Suspect]
     Active Substance: RALTEGRAVIR POTASSIUM
     Indication: HIV INFECTION
     Route: 048
     Dates: start: 20200812, end: 20201002
  8. ATORVASTATIN (LIPITOR) 40 MG TABLET [Concomitant]
  9. TAMSULOSIN (FLOMAX) 0.4 MG 24 HR CAPSULE [Concomitant]
  10. LISINOPRIL (PRINIVIL,ZESTRIL) 10 MG TABLET [Concomitant]
  11. PANTOPRAZOLE (PROTONIX) 40 MG EC TABLET [Concomitant]
  12. FOOD SUPPLEMT, LACTOSE-REDUCED (ENSURE) LIQ [Concomitant]
  13. MULTIVITAMIN TABLET [Concomitant]

REACTIONS (1)
  - Death [None]

NARRATIVE: CASE EVENT DATE: 20201002
